FAERS Safety Report 12733515 (Version 2)
Quarter: 2016Q3

REPORT INFORMATION
  Report Type: Spontaneous
  Country: US (occurrence: US)
  Receive Date: 20160912
  Receipt Date: 20160921
  Transmission Date: 20161109
  Serious: Yes (Hospitalization)
  Sender: FDA-Public Use
  Company Number: US-JNJFOC-20160622858

PATIENT
  Age: 67 Year
  Sex: Female
  Weight: 48.54 kg

DRUGS (13)
  1. EVISTA [Concomitant]
     Active Substance: RALOXIFENE HYDROCHLORIDE
     Indication: BONE DENSITY ABNORMAL
     Route: 065
  2. ACTONEL [Concomitant]
     Active Substance: RISEDRONATE SODIUM
     Route: 065
  3. FLECAINIDE [Concomitant]
     Active Substance: FLECAINIDE
     Indication: ATRIAL FLUTTER
     Route: 065
     Dates: start: 20151210, end: 20160909
  4. ASPIRIN. [Suspect]
     Active Substance: ASPIRIN
     Indication: PRODUCT USED FOR UNKNOWN INDICATION
     Route: 065
  5. XARELTO [Suspect]
     Active Substance: RIVAROXABAN
     Indication: ATRIAL FLUTTER
     Route: 048
     Dates: start: 20151210, end: 20160305
  6. XARELTO [Suspect]
     Active Substance: RIVAROXABAN
     Indication: CEREBROVASCULAR ACCIDENT PROPHYLAXIS
     Route: 048
     Dates: start: 20151210, end: 20160305
  7. METOPROLOL SUCCINATE. [Concomitant]
     Active Substance: METOPROLOL SUCCINATE
     Indication: CARDIAC DISORDER
     Route: 065
  8. METOPROLOL SUCCINATE. [Concomitant]
     Active Substance: METOPROLOL SUCCINATE
     Indication: ESSENTIAL HYPERTENSION
     Route: 065
  9. NASONEX [Concomitant]
     Active Substance: MOMETASONE FUROATE
     Dosage: 50 MCG/ACT
     Route: 065
  10. XARELTO [Suspect]
     Active Substance: RIVAROXABAN
     Indication: ATRIAL FIBRILLATION
     Route: 048
     Dates: start: 20151210, end: 20160305
  11. ANUSOL-HC [Concomitant]
     Dosage: STRENGTH: 2.5%
     Route: 065
  12. ASTEPRO [Concomitant]
     Active Substance: AZELASTINE HYDROCHLORIDE
     Dosage: 0.15%
     Route: 065
  13. PATANOL [Concomitant]
     Active Substance: OLOPATADINE HYDROCHLORIDE
     Dosage: STRENGTH 0.1%
     Route: 065

REACTIONS (5)
  - Haemorrhagic anaemia [Recovering/Resolving]
  - Hypomagnesaemia [Recovered/Resolved]
  - Epistaxis [Recovered/Resolved]
  - Hyponatraemia [Not Recovered/Not Resolved]
  - Thrombocytopenia [Unknown]

NARRATIVE: CASE EVENT DATE: 201603
